FAERS Safety Report 23721039 (Version 2)
Quarter: 2024Q2

REPORT INFORMATION
  Report Type: Spontaneous
  Country: GR (occurrence: GR)
  Receive Date: 20240409
  Receipt Date: 20240426
  Transmission Date: 20240716
  Serious: Yes (Hospitalization, Other)
  Sender: FDA-Public Use
  Company Number: GR-002147023-NVSC2024GR073300

PATIENT
  Age: 63 Year
  Sex: Female

DRUGS (6)
  1. LETROZOLE [Suspect]
     Active Substance: LETROZOLE
     Indication: Lymphangiosis carcinomatosa
     Dosage: 2.5 MG, QD
     Route: 065
  2. LETROZOLE [Suspect]
     Active Substance: LETROZOLE
     Indication: Lung disorder
  3. PALBOCICLIB [Suspect]
     Active Substance: PALBOCICLIB
     Indication: Lymphangiosis carcinomatosa
     Dosage: 125 MG
     Route: 065
  4. PALBOCICLIB [Suspect]
     Active Substance: PALBOCICLIB
     Indication: Lung disorder
     Route: 065
  5. DOCETAXEL [Concomitant]
     Active Substance: DOCETAXEL\DOCETAXEL ANHYDROUS
     Indication: Invasive ductal breast carcinoma
     Dosage: UNK
     Route: 065
  6. DOCETAXEL [Concomitant]
     Active Substance: DOCETAXEL\DOCETAXEL ANHYDROUS
     Route: 065

REACTIONS (5)
  - Cardiac failure acute [Recovered/Resolved]
  - Stress cardiomyopathy [Recovered/Resolved]
  - Neutropenia [Unknown]
  - Alopecia [Unknown]
  - Nausea [Unknown]
